FAERS Safety Report 13721583 (Version 2)
Quarter: 2017Q4

REPORT INFORMATION
  Report Type: Spontaneous
  Country: FR (occurrence: FR)
  Receive Date: 20170706
  Receipt Date: 20171011
  Transmission Date: 20180320
  Serious: Yes (Other)
  Sender: FDA-Public Use
  Company Number: FR-BAYER-2017-128401

PATIENT
  Age: 30 Year
  Sex: Female

DRUGS (1)
  1. MIRENA [Suspect]
     Active Substance: LEVONORGESTREL
     Indication: CONTRACEPTION
     Dosage: 20 MCG/24HR, CONT
     Route: 015
     Dates: start: 20161105, end: 20170529

REACTIONS (11)
  - Frequent bowel movements [Recovered/Resolved]
  - Migraine [Recovered/Resolved]
  - Breast pain [Recovered/Resolved]
  - Skin exfoliation [Recovered/Resolved]
  - Alopecia [Recovered/Resolved]
  - Dandruff [Recovered/Resolved]
  - Asthenia [Recovered/Resolved]
  - Dysmenorrhoea [Recovered/Resolved]
  - Abdominal distension [Recovered/Resolved]
  - Dyspareunia [Recovered/Resolved]
  - Pollakiuria [Recovered/Resolved]

NARRATIVE: CASE EVENT DATE: 201611
